FAERS Safety Report 8236754-6 (Version None)
Quarter: 2012Q1

REPORT INFORMATION
  Report Type: 
  Country: None (occurrence: None)
  Receive Date: 20120323
  Receipt Date: 20120306
  Transmission Date: 20120608
  Serious: Yes (Other)
  Sender: FDA-Public Use
  Company Number: 2012P1009182

PATIENT

DRUGS (1)
  1. WARFARIN SODIUM [Suspect]

REACTIONS (1)
  - THROMBOSIS [None]
